FAERS Safety Report 12073501 (Version 1)
Quarter: 2016Q1

REPORT INFORMATION
  Report Type: Spontaneous
  Country: US (occurrence: US)
  Receive Date: 20160212
  Receipt Date: 20160212
  Transmission Date: 20160526
  Serious: No
  Sender: FDA-Public Use
  Company Number: US-BAYER-2016-020872

PATIENT
  Age: 63 Year
  Sex: Male
  Weight: 72.11 kg

DRUGS (2)
  1. LOTRIMIN ULTRA ANTIFUNGAL [Suspect]
     Active Substance: BUTENAFINE HYDROCHLORIDE
     Indication: EAR INFECTION FUNGAL
     Dosage: 1 DF, QD
     Dates: start: 2013
  2. LOTRIMIN AF ANTIFUNGAL [Suspect]
     Active Substance: MICONAZOLE NITRATE
     Indication: EAR INFECTION FUNGAL

REACTIONS (1)
  - Product use issue [None]
